FAERS Safety Report 10663890 (Version 2)
Quarter: 2014Q4

REPORT INFORMATION
  Report Type: Report from Study
  Country: PL (occurrence: PL)
  Receive Date: 20141219
  Receipt Date: 20141219
  Transmission Date: 20150529
  Serious: Yes (Hospitalization)
  Sender: FDA-Public Use
  Company Number: PL-ROCHE-1248202

PATIENT
  Age: 64 Year
  Sex: Male
  Weight: 81.6 kg

DRUGS (43)
  1. METHOXY POLYETHYLENE GLYCOL-EPOETIN BETA [Suspect]
     Active Substance: PEGZEREPOETIN ALFA
     Indication: NEPHROGENIC ANAEMIA
     Dosage: 17/OCT/2013, LAST DOSE PRIOR TO EVENT.
     Route: 042
     Dates: start: 20110616
  2. METHOXY POLYETHYLENE GLYCOL-EPOETIN BETA [Suspect]
     Active Substance: PEGZEREPOETIN ALFA
     Route: 042
     Dates: start: 20130516
  3. ACETYLSALICYLIC ACID [Concomitant]
     Active Substance: ASPIRIN
     Route: 065
     Dates: start: 20100408
  4. RUTOSIDUM [Concomitant]
     Route: 065
     Dates: start: 20091115
  5. SOTALOL HYDROCHLORIDE. [Concomitant]
     Active Substance: SOTALOL HYDROCHLORIDE
     Route: 065
     Dates: start: 20130629
  6. FUROSEMIDE. [Concomitant]
     Active Substance: FUROSEMIDE
     Route: 065
     Dates: start: 20071023
  7. ALLOPURINOL. [Concomitant]
     Active Substance: ALLOPURINOL
     Route: 065
     Dates: start: 20080314, end: 20130619
  8. CARBAMAZEPINE. [Concomitant]
     Active Substance: CARBAMAZEPINE
     Route: 065
     Dates: end: 20130619
  9. PANTOPRAZOLE [Concomitant]
     Active Substance: PANTOPRAZOLE SODIUM
     Route: 065
     Dates: start: 20130625
  10. INSULIN GLARGINE [Concomitant]
     Active Substance: INSULIN GLARGINE
     Route: 065
     Dates: start: 20071023, end: 20130619
  11. CALCIUM CARBONATE. [Concomitant]
     Active Substance: CALCIUM CARBONATE
     Route: 065
     Dates: start: 20130619
  12. PANTOPRAZOLE [Concomitant]
     Active Substance: PANTOPRAZOLE SODIUM
     Route: 065
     Dates: start: 20130806
  13. PERINDOPRIL [Concomitant]
     Active Substance: PERINDOPRIL
     Route: 065
     Dates: start: 20130625
  14. TAMSULOSINI HYDROCHLORIDUM [Concomitant]
     Route: 065
     Dates: start: 20100918
  15. ACID FOLIC [Concomitant]
     Route: 065
     Dates: start: 20130907
  16. DEXAMETHASONUM [Concomitant]
     Active Substance: DEXAMETHASONE
     Route: 065
     Dates: start: 20140210
  17. RAMIPRIL. [Concomitant]
     Active Substance: RAMIPRIL
     Route: 065
     Dates: start: 20130323
  18. AMLODIPINE [Concomitant]
     Active Substance: AMLODIPINE BESYLATE
     Route: 065
     Dates: start: 20100907
  19. ATORVASTATIN [Concomitant]
     Active Substance: ATORVASTATIN
     Route: 065
     Dates: start: 20100417
  20. VINPOCETINE [Concomitant]
     Active Substance: VINPOCETINE
     Route: 065
     Dates: start: 20131217
  21. PARACETAMOLUM [Concomitant]
     Dosage: AS NEEDED.
     Route: 065
     Dates: start: 20130425
  22. PYRIDOXINE [Concomitant]
     Active Substance: PYRIDOXINE
     Route: 065
     Dates: start: 20131217
  23. INSULIN ASPART [Concomitant]
     Active Substance: INSULIN ASPART
     Route: 065
     Dates: start: 20071023, end: 20130619
  24. LACIDIPINE [Concomitant]
     Active Substance: LACIDIPINE
     Route: 065
     Dates: start: 20130806
  25. DOXAZOSINI MESILAS [Concomitant]
     Route: 065
     Dates: start: 20130930
  26. BISOPROLOLI FUMARAS [Concomitant]
     Route: 065
     Dates: start: 20131211
  27. PREDNISONE. [Concomitant]
     Active Substance: PREDNISONE
     Route: 065
     Dates: start: 20130924, end: 20131109
  28. LOSARTAN [Concomitant]
     Active Substance: LOSARTAN
     Route: 065
     Dates: start: 20130930
  29. DOXAZOSIN [Concomitant]
     Active Substance: DOXAZOSIN\DOXAZOSIN MESYLATE
     Route: 065
     Dates: start: 20130930
  30. ALFACALCIDOL [Concomitant]
     Active Substance: ALFACALCIDOL
  31. SOTALOL HYDROCHLORIDE. [Concomitant]
     Active Substance: SOTALOL HYDROCHLORIDE
     Route: 065
     Dates: start: 20130606
  32. TAMSULOSIN [Concomitant]
     Active Substance: TAMSULOSIN
     Route: 065
     Dates: start: 20100918
  33. FUROSEMIDE. [Concomitant]
     Active Substance: FUROSEMIDE
     Route: 065
     Dates: start: 20080122
  34. PANTOPRAZOLE [Concomitant]
     Active Substance: PANTOPRAZOLE SODIUM
     Route: 065
     Dates: start: 20110503, end: 20130619
  35. CLOPIDOGREL [Concomitant]
     Active Substance: CLOPIDOGREL BISULFATE
     Route: 065
     Dates: start: 20130606, end: 20130619
  36. CAPTOPRIL. [Concomitant]
     Active Substance: CAPTOPRIL
     Dosage: AS NEEDED
     Route: 065
  37. GABAPENTIN. [Concomitant]
     Active Substance: GABAPENTIN
     Route: 065
     Dates: start: 20140429
  38. FINASTERIDE. [Concomitant]
     Active Substance: FINASTERIDE
     Route: 065
     Dates: start: 20101106
  39. FINASTERIDE. [Concomitant]
     Active Substance: FINASTERIDE
     Route: 065
     Dates: start: 20130619
  40. CALCIUM CARBONATE. [Concomitant]
     Active Substance: CALCIUM CARBONATE
     Route: 065
     Dates: start: 20080122
  41. BISOPROLOLI FUMARAS [Concomitant]
     Route: 065
     Dates: start: 20070723
  42. ACIDUM ASCORBICUM [Concomitant]
     Route: 065
     Dates: start: 20091115
  43. MELATONIN [Concomitant]
     Active Substance: MELATONIN
     Route: 065
     Dates: start: 20131217

REACTIONS (4)
  - Coronary artery disease [Recovered/Resolved with Sequelae]
  - Pneumonia [Recovered/Resolved with Sequelae]
  - Postpericardiotomy syndrome [Recovered/Resolved]
  - Coronary artery disease [Unknown]

NARRATIVE: CASE EVENT DATE: 20120905
